FAERS Safety Report 23610552 (Version 3)
Quarter: 2024Q4

REPORT INFORMATION
  Report Type: Report from Study
  Country: US (occurrence: US)
  Receive Date: 20240308
  Receipt Date: 20241210
  Transmission Date: 20250115
  Serious: Yes (Other)
  Sender: ABBVIE
  Company Number: US-ABBVIE-5668175

PATIENT
  Age: 55 Year
  Sex: Male

DRUGS (1)
  1. RINVOQ [Suspect]
     Active Substance: UPADACITINIB
     Indication: Rheumatoid arthritis
     Route: 048
     Dates: start: 20231105, end: 20240225

REACTIONS (4)
  - Osteonecrosis [Recovering/Resolving]
  - Cardiac disorder [Unknown]
  - Weight increased [Unknown]
  - Hypertension [Unknown]
